FAERS Safety Report 5932892-9 (Version None)
Quarter: 2008Q4

REPORT INFORMATION
  Report Type: 
  Country: None (occurrence: None)
  Receive Date: 20081028
  Receipt Date: 20081020
  Transmission Date: 20090506
  Serious: Yes (Other)
  Sender: FDA-Public Use
  Company Number: US-KINGPHARMUSA00001-K200801219

PATIENT

DRUGS (13)
  1. SKELAXIN [Suspect]
     Indication: FIBROMYALGIA
     Dosage: 800 MG, SINGLE
     Route: 048
     Dates: start: 20081009, end: 20081009
  2. ZYRTEC [Concomitant]
     Indication: MIGRAINE
     Dosage: 10 MG, QHS
  3. LYRICA [Concomitant]
     Indication: FIBROMYALGIA
     Dosage: 75 MG, QHS
  4. VALTREX [Concomitant]
     Indication: HERPES VIRUS INFECTION
     Dosage: 500 MG, QHS
  5. AMITRIPTYLINE HCL [Concomitant]
     Indication: MIGRAINE
     Dosage: 50 MG, QHS
  6. AMITRIPTYLINE HCL [Concomitant]
     Indication: FIBROMYALGIA
  7. DICLOFENAC [Concomitant]
     Dosage: 75 MG, QHS
  8. GARLIC                             /01570501/ [Concomitant]
     Indication: SUPPLEMENTATION THERAPY
     Dosage: 1000 MG, QD
  9. SALMON [Concomitant]
     Dosage: 1000 MG, QD
  10. GUGGAL [Concomitant]
     Dosage: 500 MG, QD
  11. MILK THISTLE [Concomitant]
     Dosage: 175 MG, QD
  12. DANDELION ROOT [Concomitant]
     Dosage: 540 MG, QD
  13. RED YEAST RICE [Concomitant]
     Dosage: 1200 MG, QD

REACTIONS (5)
  - HALLUCINATION, AUDITORY [None]
  - HALLUCINATION, VISUAL [None]
  - PAIN [None]
  - PAIN IN JAW [None]
  - THINKING ABNORMAL [None]
